FAERS Safety Report 6762188-7 (Version None)
Quarter: 2010Q2

REPORT INFORMATION
  Report Type: 
  Country: None (occurrence: None)
  Receive Date: 20100609
  Receipt Date: 20100415
  Transmission Date: 20101027
  Serious: No
  Sender: FDA-Public Use
  Company Number: US-KINGPHARMUSA00001-K201000469

PATIENT
  Sex: Female
  Weight: 65.306 kg

DRUGS (5)
  1. EMBEDA [Suspect]
     Indication: BACK PAIN
     Dosage: 60 MG, QD
     Route: 048
     Dates: start: 20100413, end: 20100415
  2. LEVOTHYROXINE SODIUM [Concomitant]
     Indication: HYPOTHYROIDISM
     Dosage: 100 MCG, QD
  3. TRAZODONE HCL [Concomitant]
     Dosage: 100 MG, BID
  4. SERTRALINE HCL [Concomitant]
     Dosage: 100 MG, BID
  5. LOVASTATIN [Concomitant]
     Dosage: 40 MG, QD

REACTIONS (9)
  - ABDOMINAL DISCOMFORT [None]
  - BACK PAIN [None]
  - DRY EYE [None]
  - DRY MOUTH [None]
  - DRY THROAT [None]
  - DYSPHONIA [None]
  - HEADACHE [None]
  - MYALGIA [None]
  - WITHDRAWAL SYNDROME [None]
